FAERS Safety Report 25641664 (Version 1)
Quarter: 2025Q3

REPORT INFORMATION
  Report Type: Spontaneous
  Country: US (occurrence: US)
  Receive Date: 20250804
  Receipt Date: 20250804
  Transmission Date: 20251021
  Serious: No
  Sender: EISAI
  Company Number: US-Eisai-EC-2025-193585

PATIENT
  Sex: Female

DRUGS (1)
  1. LEQEMBI [Suspect]
     Active Substance: LECANEMAB-IRMB
     Indication: Dementia Alzheimer^s type
     Dates: start: 2024

REACTIONS (4)
  - Chills [Recovered/Resolved]
  - Body temperature increased [Recovered/Resolved]
  - Hypertension [Recovered/Resolved]
  - White coat hypertension [Recovered/Resolved]

NARRATIVE: CASE EVENT DATE: 20240101
